FAERS Safety Report 17004691 (Version 4)
Quarter: 2021Q4

REPORT INFORMATION
  Report Type: Spontaneous
  Country: US (occurrence: US)
  Receive Date: 20191107
  Receipt Date: 20211019
  Transmission Date: 20220303
  Serious: Yes (Hospitalization, Other)
  Sender: FDA-Public Use
  Company Number: US-PFIZER INC-2019481599

PATIENT
  Age: 71 Year
  Sex: Female
  Weight: 101 kg

DRUGS (1)
  1. XELJANZ XR [Suspect]
     Active Substance: TOFACITINIB CITRATE
     Indication: Rheumatoid arthritis
     Dosage: 11 MG, 1X/DAY
     Route: 048
     Dates: end: 20191230

REACTIONS (6)
  - Respiratory failure [Unknown]
  - Vertigo [Unknown]
  - Infection [Unknown]
  - Illness [Unknown]
  - Condition aggravated [Unknown]
  - Irritability [Unknown]

NARRATIVE: CASE EVENT DATE: 20191201
